FAERS Safety Report 5208355-5 (Version None)
Quarter: 2007Q1

REPORT INFORMATION
  Report Type: 
  Country: None (occurrence: None)
  Receive Date: 20070115
  Receipt Date: 20070108
  Transmission Date: 20070707
  Serious: Yes (Life-Threatening)
  Sender: FDA-Public Use
  Company Number: US-BAXTER-2007BH000218

PATIENT

DRUGS (1)
  1. DOPAMINE HYDROCHLORIDE [Suspect]
     Indication: DRUG USE FOR UNKNOWN INDICATION
     Dosage: DOSE UNIT:CUBIC CENTIMETER
     Route: 042

REACTIONS (4)
  - BLOOD PRESSURE INCREASED [None]
  - DEVICE FAILURE [None]
  - OVERDOSE [None]
  - TACHYCARDIA [None]
